FAERS Safety Report 7619132-X (Version None)
Quarter: 2011Q3

REPORT INFORMATION
  Report Type: 
  Country: None (occurrence: None)
  Receive Date: 20110718
  Receipt Date: 20110708
  Transmission Date: 20111222
  Serious: Yes (Hospitalization)
  Sender: FDA-Public Use
  Company Number: SE-ASTRAZENECA-2011SE41834

PATIENT
  Age: 85 Year
  Sex: Female

DRUGS (10)
  1. DIKLOFENAK [Suspect]
     Indication: FIBROMYALGIA
     Route: 048
     Dates: start: 20110301, end: 20110322
  2. VISCOTEARS [Concomitant]
     Dosage: 2 MG/G
  3. KALEORID [Concomitant]
  4. DIKLOFENAK [Suspect]
     Route: 048
     Dates: start: 20110301, end: 20110322
  5. COZAAR [Concomitant]
  6. ASPIRIN [Concomitant]
  7. DUROFERON [Concomitant]
     Dosage: 100 MG+FE2
  8. OPTIMOL [Concomitant]
     Dosage: 5 MG/ML
  9. FUROSEMIDE [Concomitant]
     Dosage: 20 MG
  10. OMEPRAZOLE [Suspect]
     Route: 048
     Dates: start: 20110301

REACTIONS (2)
  - GASTRIC ULCER [None]
  - DIARRHOEA [None]
